FAERS Safety Report 8541465-3 (Version None)
Quarter: 2012Q3

REPORT INFORMATION
  Report Type: 
  Country: None (occurrence: None)
  Receive Date: 20120726
  Receipt Date: 20120718
  Transmission Date: 20120928
  Serious: Yes (Hospitalization)
  Sender: FDA-Public Use
  Company Number: BR-MSD-1207BRA007428

PATIENT

DRUGS (8)
  1. PEG-INTRON [Suspect]
     Dosage: 80 UNK, UNK
     Dates: start: 20120616
  2. FILGRASTIM [Concomitant]
     Dosage: UNK
     Dates: start: 20120601
  3. EPOETIN [Concomitant]
     Dosage: UNK
     Dates: start: 20120601
  4. VICTRELIS [Suspect]
     Indication: HEPATITIS C
     Dosage: UNK
     Route: 048
     Dates: start: 20120616
  5. RIBAVIRIN [Suspect]
     Dosage: 2 TABLETS, BID
     Route: 048
     Dates: start: 20020101, end: 20020101
  6. PEG-INTRON [Suspect]
     Indication: HEPATITIS C
     Dosage: 120 MICROGRAM, UNK
     Dates: start: 20120526, end: 20120615
  7. RIBAVIRIN [Suspect]
     Indication: HEPATITIS C
     Dosage: 2 TABLETS, QAM
     Route: 048
     Dates: start: 20120101
  8. RIBAVIRIN [Suspect]
     Dosage: 1 TABLET, QPM
     Route: 048
     Dates: start: 20120101

REACTIONS (8)
  - PLATELET COUNT DECREASED [None]
  - WHITE BLOOD CELL COUNT DECREASED [None]
  - NEUTROPHIL COUNT DECREASED [None]
  - OEDEMA PERIPHERAL [None]
  - DYSENTERY [None]
  - WEIGHT DECREASED [None]
  - ABDOMINAL DISTENSION [None]
  - DIARRHOEA [None]
